FAERS Safety Report 5246484-0 (Version None)
Quarter: 2007Q1

REPORT INFORMATION
  Report Type: 
  Country: None (occurrence: None)
  Receive Date: 20070226
  Receipt Date: 20070216
  Transmission Date: 20070707
  Serious: Yes (Hospitalization)
  Sender: FDA-Public Use
  Company Number: NL-BRISTOL-MYERS SQUIBB COMPANY-13647151

PATIENT
  Age: 42 Year
  Sex: Male

DRUGS (10)
  1. CISPLATIN [Suspect]
     Indication: NON-SMALL CELL LUNG CANCER
     Route: 042
     Dates: start: 20061114
  2. PF-3512676 [Suspect]
     Indication: NON-SMALL CELL LUNG CANCER
     Route: 058
     Dates: start: 20061121
  3. GEMCITABINE [Suspect]
     Indication: NON-SMALL CELL LUNG CANCER
     Route: 042
     Dates: start: 20061114
  4. DEXAMETHASONE [Concomitant]
     Dates: start: 20061228, end: 20070102
  5. POTASSIUM CHLORIDE [Concomitant]
     Dates: start: 20061228, end: 20061229
  6. MAGNESIUM [Concomitant]
     Dates: start: 20061228, end: 20061229
  7. FUROSEMIDE [Concomitant]
     Dates: start: 20061228, end: 20061229
  8. APREPITANT [Concomitant]
     Dates: start: 20061228, end: 20061230
  9. METOCLOPRAMIDE [Concomitant]
     Dates: start: 20061124
  10. ONDANSETRON [Concomitant]
     Dates: start: 20061228

REACTIONS (1)
  - PNEUMONITIS [None]
